FAERS Safety Report 5453236-5 (Version None)
Quarter: 2007Q3

REPORT INFORMATION
  Report Type: 
  Country: None (occurrence: None)
  Receive Date: 20070914
  Receipt Date: 20070903
  Transmission Date: 20080115
  Serious: Yes (Other)
  Sender: FDA-Public Use
  Company Number: DE-PFIZER INC-2007074785

PATIENT
  Age: 62 Year
  Sex: Female

DRUGS (2)
  1. DOSTINEX [Suspect]
     Indication: PROLACTINOMA
     Route: 048
  2. LEVOTHYROXINE SODIUM [Concomitant]

REACTIONS (8)
  - ABDOMINAL PAIN [None]
  - COAGULOPATHY [None]
  - HAEMORRHAGE [None]
  - HYPOTENSION [None]
  - MOOD SWINGS [None]
  - MOUTH HAEMORRHAGE [None]
  - NAUSEA [None]
  - TOOTH EXTRACTION [None]
